FAERS Safety Report 24844309 (Version 1)
Quarter: 2025Q1

REPORT INFORMATION
  Report Type: Spontaneous
  Country: US (occurrence: None)
  Receive Date: 20250114
  Receipt Date: 20250114
  Transmission Date: 20250409
  Serious: Yes (Hospitalization)
  Sender: FDA-CTU
  Company Number: None

PATIENT
  Age: 63 Year
  Sex: Female

DRUGS (2)
  1. GABAPENTIN [Suspect]
     Active Substance: GABAPENTIN
     Indication: Pain
  2. HYDROXYZINE DIHYDROCHLORIDE [Suspect]
     Active Substance: HYDROXYZINE DIHYDROCHLORIDE

REACTIONS (4)
  - Overdose [None]
  - Sedation [None]
  - Intentional overdose [None]
  - Loss of consciousness [None]

NARRATIVE: CASE EVENT DATE: 20241130
